FAERS Safety Report 8516587-3 (Version None)
Quarter: 2012Q3

REPORT INFORMATION
  Report Type: 
  Country: None (occurrence: None)
  Receive Date: 20120712
  Receipt Date: 20120712
  Transmission Date: 20120928
  Serious: Yes (Hospitalization)
  Sender: FDA-Public Use
  Company Number: None

PATIENT
  Sex: Female

DRUGS (2)
  1. CETACAINE [Suspect]
     Indication: INDUCTION OF ANAESTHESIA
     Dosage: IV
     Route: 042
     Dates: start: 20120706
  2. CETACAINE [Suspect]
     Indication: THERAPEUTIC PROCEDURE
     Dosage: IV
     Route: 042
     Dates: start: 20120706

REACTIONS (2)
  - SWELLING [None]
  - POST PROCEDURAL COMPLICATION [None]
